FAERS Safety Report 5824699-8 (Version None)
Quarter: 2008Q3

REPORT INFORMATION
  Report Type: 
  Country: None (occurrence: None)
  Receive Date: 20080728
  Receipt Date: 20080722
  Transmission Date: 20090109
  Serious: Yes (Other)
  Sender: FDA-Public Use
  Company Number: JP-SANOFI-SYNTHELABO-A01200803292

PATIENT
  Age: 84 Year
  Sex: Female
  Weight: 30 kg

DRUGS (7)
  1. JUZEN-TAIHO-TO [Concomitant]
     Indication: ASTHENIA
     Route: 065
     Dates: start: 20071127
  2. ASPARA-CA [Concomitant]
     Indication: OSTEOPOROSIS
     Route: 065
     Dates: start: 20071127
  3. GASTER D [Concomitant]
     Indication: GASTRITIS
     Route: 065
     Dates: start: 20071127
  4. MUCOSTA [Concomitant]
     Indication: DRUG USE FOR UNKNOWN INDICATION
     Route: 065
     Dates: start: 20071105
  5. CELECOX [Concomitant]
     Indication: BACK PAIN
     Route: 065
     Dates: start: 20071105
  6. PLAVIX [Suspect]
     Indication: CEREBRAL INFARCTION
     Route: 048
     Dates: start: 20071127, end: 20080320
  7. PLAVIX [Suspect]
     Route: 048
     Dates: start: 20080321

REACTIONS (2)
  - DEMENTIA [None]
  - OVERDOSE [None]
